FAERS Safety Report 5054961-0 (Version None)
Quarter: 2006Q3

REPORT INFORMATION
  Report Type: 
  Country: None (occurrence: None)
  Receive Date: 20060719
  Receipt Date: 20060201
  Transmission Date: 20061208
  Serious: Yes (Hospitalization)
  Sender: FDA-Public Use
  Company Number: US-GLAXOSMITHKLINE-A0591946A

PATIENT
  Age: 24 Year
  Sex: Male
  Weight: 90 kg

DRUGS (2)
  1. REQUIP [Suspect]
     Indication: RESTLESS LEGS SYNDROME
     Dosage: 4MG SEE DOSAGE TEXT
     Route: 048
     Dates: start: 20050916, end: 20060104
  2. SONATA [Concomitant]
     Indication: INSOMNIA
     Route: 048
     Dates: start: 20051201

REACTIONS (7)
  - BUNDLE BRANCH BLOCK RIGHT [None]
  - CONTUSION [None]
  - ELECTROCARDIOGRAM ABNORMAL [None]
  - ELECTROCARDIOGRAM T WAVE INVERSION [None]
  - ROAD TRAFFIC ACCIDENT [None]
  - SYNCOPE [None]
  - VENTRICULAR TACHYCARDIA [None]
